FAERS Safety Report 11089200 (Version 1)
Quarter: 2015Q2

REPORT INFORMATION
  Report Type: Spontaneous
  Country: US (occurrence: US)
  Receive Date: 20150505
  Receipt Date: 20150505
  Transmission Date: 20150821
  Serious: No
  Sender: FDA-Public Use
  Company Number: US-009507513-1504USA024487

PATIENT
  Age: 24 Year
  Sex: Female
  Weight: 90.25 kg

DRUGS (2)
  1. PHENERGAN [Concomitant]
     Active Substance: PROMETHAZINE HYDROCHLORIDE
  2. IMPLANON [Suspect]
     Active Substance: ETONOGESTREL
     Indication: CONTRACEPTION
     Dosage: 68 MG, UNK
     Route: 059
     Dates: start: 20080519

REACTIONS (5)
  - Incorrect drug administration duration [Unknown]
  - Urinary tract infection [Unknown]
  - Unintended pregnancy [Unknown]
  - Menstruation irregular [Unknown]
  - Vaginal haemorrhage [Unknown]

NARRATIVE: CASE EVENT DATE: 20110519
